FAERS Safety Report 5636629-2 (Version None)
Quarter: 2008Q1

REPORT INFORMATION
  Report Type: 
  Country: None (occurrence: None)
  Receive Date: 20080219
  Receipt Date: 20080208
  Transmission Date: 20080703
  Serious: Yes (Other)
  Sender: FDA-Public Use
  Company Number: 2008-01269

PATIENT
  Age: 44 Year
  Sex: Female

DRUGS (2)
  1. TRELSTAR DEPOT [Suspect]
     Indication: UTERINE LEIOMYOMA
     Dosage: 3 MG, SINGLE, INTRAMUSCULAR
     Route: 030
     Dates: start: 20080124
  2. NICOUMALONE (ACENOCOUMAROL) [Concomitant]

REACTIONS (1)
  - CHEST PAIN [None]
